FAERS Safety Report 6758036-1 (Version None)
Quarter: 2010Q2

REPORT INFORMATION
  Report Type: 
  Country: None (occurrence: None)
  Receive Date: 20100607
  Receipt Date: 20100601
  Transmission Date: 20101027
  Serious: Yes (Death)
  Sender: FDA-Public Use
  Company Number: BR-SANOFI-AVENTIS-2010SA019624

PATIENT
  Age: 43 Year
  Sex: Male
  Weight: 71 kg

DRUGS (6)
  1. AFLIBERCEPT [Suspect]
     Indication: NON-SMALL CELL LUNG CANCER
     Route: 042
     Dates: start: 20100112, end: 20100112
  2. AFLIBERCEPT [Suspect]
     Route: 042
     Dates: start: 20100317, end: 20100317
  3. DOCETAXEL [Suspect]
     Indication: NON-SMALL CELL LUNG CANCER
     Route: 042
     Dates: start: 20100112, end: 20100112
  4. DOCETAXEL [Suspect]
     Route: 042
     Dates: start: 20100317, end: 20100317
  5. IBUPROFENO [Concomitant]
     Dates: start: 20090901
  6. PARACETAMOL [Concomitant]
     Dates: start: 20090901

REACTIONS (1)
  - DEATH [None]
